FAERS Safety Report 8927564 (Version 2)
Quarter: 2012Q4

REPORT INFORMATION
  Report Type: 
  Country: CL (occurrence: CL)
  Receive Date: 20121127
  Receipt Date: 20121130
  Transmission Date: 20130627
  Serious: Yes (Other)
  Sender: FDA-Public Use
  Company Number: PHHY2012CL108025

PATIENT
  Age: 80 Year
  Sex: Female

DRUGS (3)
  1. ACLASTA [Suspect]
     Indication: OSTEOPOROSIS
     Dosage: 5 mg/100 ml
     Route: 042
     Dates: start: 2010
  2. ACLASTA [Suspect]
     Dosage: 5 mg/100 ml
     Route: 042
     Dates: start: 2011
  3. CALCIUM [Concomitant]

REACTIONS (4)
  - Injury [Recovering/Resolving]
  - Pain in extremity [Recovering/Resolving]
  - Abasia [Recovering/Resolving]
  - Arthralgia [Recovering/Resolving]
